FAERS Safety Report 9374872 (Version 2)
Quarter: 2013Q3

REPORT INFORMATION
  Report Type: Report from Study
  Country: US (occurrence: US)
  Receive Date: 20130628
  Receipt Date: 20130802
  Transmission Date: 20140515
  Serious: Yes (Hospitalization)
  Sender: FDA-Public Use
  Company Number: US-ASTELLAS-2013EU005489

PATIENT
  Age: 50 Year
  Sex: Female
  Weight: 68.1 kg

DRUGS (17)
  1. BLINDED FIDAXOMICIN [Suspect]
     Indication: PROPHYLAXIS
     Dosage: 1 TABLET, QD
     Route: 048
     Dates: start: 20130426, end: 20130603
  2. PROGRAF [Suspect]
     Indication: PROPHYLAXIS AGAINST GRAFT VERSUS HOST DISEASE
     Dosage: 1.45 MG TO 1.8 MG, QD
     Route: 042
     Dates: start: 20130501, end: 20130519
  3. PROGRAF [Suspect]
     Dosage: 1.5 MG, BID
     Route: 048
     Dates: start: 20130520
  4. CYTOVENE [Concomitant]
     Indication: ANTIVIRAL PROPHYLAXIS
     Dosage: 410-MG-QD
     Route: 042
     Dates: start: 20130424
  5. PRINIVIL [Concomitant]
     Indication: HYPERTENSION
     Dosage: 10-MG-QD
     Route: 048
     Dates: start: 20120101
  6. COLACE [Concomitant]
     Indication: CONSTIPATION PROPHYLAXIS
     Dosage: 100-MG-BID
     Route: 048
     Dates: start: 20130426
  7. COLACE [Concomitant]
     Indication: CONSTIPATION
  8. PRIVIGEN [Concomitant]
     Indication: PROPHYLAXIS AGAINST GRAFT VERSUS HOST DISEASE
     Dosage: 35-G-QWEEKLY
     Route: 042
     Dates: start: 20130501
  9. NOXAFIL [Concomitant]
     Indication: ANTIFUNGAL PROPHYLAXIS
     Dosage: 400-MG-BID
     Route: 048
     Dates: start: 20130504
  10. PREDNISONE [Concomitant]
     Indication: PROPHYLAXIS AGAINST GRAFT VERSUS HOST DISEASE
     Dosage: 40-MG-QD
     Route: 048
     Dates: start: 20130521
  11. ZOFRAN [Concomitant]
     Indication: PROPHYLAXIS OF NAUSEA AND VOMITING
     Dosage: 8-MG-PRN
     Route: 048
     Dates: start: 20130521
  12. OXYCODONE [Concomitant]
     Indication: PAIN MANAGEMENT
     Dosage: 5-MG-PRN
     Route: 048
     Dates: start: 20130518
  13. PROTONIX [Concomitant]
     Indication: PROPHYLAXIS AGAINST GASTROINTESTINAL ULCER
     Dosage: 40-MG-QD
     Route: 048
     Dates: start: 20130518
  14. LEUCOVORIN [Concomitant]
     Indication: PROPHYLAXIS
     Dosage: 5-MG-SAT AND SUN
     Route: 048
     Dates: start: 20130521
  15. BACTRIM [Concomitant]
     Indication: ANTIFUNGAL PROPHYLAXIS
     Dosage: 1-TABLET-SAT AND SUN TID
     Route: 048
     Dates: start: 20130521
  16. PRADAXA [Concomitant]
     Indication: THROMBOSIS PROPHYLAXIS
     Dosage: 150-MG-BID
     Route: 048
     Dates: start: 20130521
  17. PRADAXA [Concomitant]
     Indication: THROMBOSIS PROPHYLAXIS

REACTIONS (1)
  - Diffuse large B-cell lymphoma recurrent [Not Recovered/Not Resolved]
